FAERS Safety Report 7335344-7 (Version None)
Quarter: 2011Q1

REPORT INFORMATION
  Report Type: 
  Country: None (occurrence: None)
  Receive Date: 20110307
  Receipt Date: 20110208
  Transmission Date: 20110831
  Serious: Yes (Hospitalization)
  Sender: FDA-Public Use
  Company Number: US-PFIZER INC-2011035471

PATIENT
  Age: 5 Year
  Sex: Male
  Weight: 22.676 kg

DRUGS (1)
  1. CHILDREN'S MOTRIN [Suspect]
     Dosage: UNK
     Route: 048
     Dates: start: 20071101

REACTIONS (2)
  - PRODUCT QUALITY ISSUE [None]
  - ASTHMA [None]
